FAERS Safety Report 8546799-4 (Version None)
Quarter: 2012Q3

REPORT INFORMATION
  Report Type: 
  Country: None (occurrence: None)
  Receive Date: 20120727
  Receipt Date: 20120209
  Transmission Date: 20120928
  Serious: No
  Sender: FDA-Public Use
  Company Number: US-ASTRAZENECA-2012SE07899

PATIENT
  Age: 30 Year
  Sex: Male

DRUGS (2)
  1. SEROQUEL [Suspect]
     Route: 048
  2. SEROQUEL [Suspect]
     Route: 048

REACTIONS (5)
  - HEADACHE [None]
  - DIZZINESS [None]
  - WITHDRAWAL SYNDROME [None]
  - DRUG DOSE OMISSION [None]
  - NAUSEA [None]
